FAERS Safety Report 19732676 (Version 3)
Quarter: 2022Q4

REPORT INFORMATION
  Report Type: Spontaneous
  Country: US (occurrence: US)
  Receive Date: 20210823
  Receipt Date: 20221116
  Transmission Date: 20230113
  Serious: No
  Sender: FDA-Public Use
  Company Number: US-BIOGEN-2021BI01037466

PATIENT
  Sex: Male

DRUGS (3)
  1. VUMERITY [Suspect]
     Active Substance: DIROXIMEL FUMARATE
     Indication: Multiple sclerosis
     Route: 050
     Dates: start: 202108
  2. VUMERITY [Suspect]
     Active Substance: DIROXIMEL FUMARATE
     Route: 050
     Dates: start: 20220119
  3. VUMERITY [Suspect]
     Active Substance: DIROXIMEL FUMARATE
     Route: 050
     Dates: start: 20220126

REACTIONS (10)
  - Intentional product misuse [Not Recovered/Not Resolved]
  - Gait disturbance [Unknown]
  - Musculoskeletal stiffness [Recovered/Resolved]
  - Discomfort [Recovered/Resolved]
  - Pain [Unknown]
  - Hemiparesis [Unknown]
  - Fatigue [Unknown]
  - Peroneal nerve palsy [Recovered/Resolved]
  - Flushing [Unknown]
  - Vomiting [Recovered/Resolved]

NARRATIVE: CASE EVENT DATE: 20210101
